FAERS Safety Report 15479842 (Version 5)
Quarter: 2019Q1

REPORT INFORMATION
  Report Type: Spontaneous
  Country: US (occurrence: US)
  Receive Date: 20181009
  Receipt Date: 20190326
  Transmission Date: 20190417
  Serious: Yes (Hospitalization)
  Sender: FDA-Public Use
  Company Number: US-ACTELION-A-US2018-179639

PATIENT
  Age: 47 Year
  Sex: Female

DRUGS (2)
  1. OPSUMIT [Suspect]
     Active Substance: MACITENTAN
     Indication: PULMONARY ARTERIAL HYPERTENSION
     Dosage: 10 MG, QD
     Route: 048
     Dates: start: 20140408
  2. EPOPROSTENOL SODIUM. [Concomitant]
     Active Substance: EPOPROSTENOL SODIUM
     Dosage: 82 NG/KG, PER MIN
     Dates: start: 20160830

REACTIONS (5)
  - Pyelonephritis [Unknown]
  - Emergency care [Not Recovered/Not Resolved]
  - Abdominal pain [Not Recovered/Not Resolved]
  - Gastric infection [Recovered/Resolved]
  - Sepsis [Unknown]

NARRATIVE: CASE EVENT DATE: 201809
